FAERS Safety Report 7754443-9 (Version None)
Quarter: 2011Q3

REPORT INFORMATION
  Report Type: 
  Country: None (occurrence: None)
  Receive Date: 20110915
  Receipt Date: 20110914
  Transmission Date: 20111222
  Serious: Yes (Death, Other)
  Sender: FDA-Public Use
  Company Number: VE-PFIZER INC-2011188192

PATIENT
  Age: 57 Year
  Sex: Female

DRUGS (9)
  1. LASIX [Concomitant]
     Dosage: UNK
     Dates: end: 20100101
  2. COZAAR [Concomitant]
     Indication: HYPERTENSION
     Dosage: UNK
     Dates: end: 20100101
  3. FERROUS FUMARATE/FOLIC ACID/MINERALS NOS/VITAMINS NOS [Concomitant]
     Dosage: UNK
     Dates: end: 20100101
  4. VITAMIN B COMPLEX CAP [Concomitant]
     Dosage: UNK
     Dates: end: 20100101
  5. LIPITOR [Suspect]
     Indication: HYPERCHOLESTEROLAEMIA
     Dosage: UNK
     Route: 048
     Dates: start: 20080101
  6. DIGOXIN [Concomitant]
     Dosage: UNK
     Dates: end: 20100101
  7. CARVEDILOL [Concomitant]
     Dosage: UNK
     Dates: end: 20100101
  8. FOLIC ACID [Concomitant]
     Dosage: UNK
     Dates: end: 20100101
  9. VITAMIN B-12 [Concomitant]
     Dosage: UNK
     Dates: end: 20100101

REACTIONS (2)
  - INFARCTION [None]
  - BLINDNESS UNILATERAL [None]
